FAERS Safety Report 10655696 (Version 1)
Quarter: 2014Q4

REPORT INFORMATION
  Report Type: Spontaneous
  Country: IT (occurrence: IT)
  Receive Date: 20141216
  Receipt Date: 20141216
  Transmission Date: 20150529
  Serious: Yes (Other)
  Sender: FDA-Public Use
  Company Number: IT-BAYER-2014-184235

PATIENT
  Sex: Female

DRUGS (6)
  1. ACETYLSALICYLIC ACID({=100 MG) [Suspect]
     Active Substance: ASPIRIN
     Indication: THROMBOSIS PROPHYLAXIS
  2. HEPARIN [Concomitant]
     Active Substance: HEPARIN SODIUM
     Indication: THROMBOSIS PROPHYLAXIS
  3. PLASMA [Concomitant]
     Active Substance: HUMAN PLASMA
     Indication: THROMBOSIS PROPHYLAXIS
  4. ACETYLSALICYLIC ACID({=100 MG) [Suspect]
     Active Substance: ASPIRIN
     Indication: THROMBOTIC THROMBOCYTOPENIC PURPURA
  5. PLASMA [Concomitant]
     Active Substance: HUMAN PLASMA
     Indication: THROMBOTIC THROMBOCYTOPENIC PURPURA
  6. HEPARIN [Concomitant]
     Active Substance: HEPARIN SODIUM
     Indication: THROMBOTIC THROMBOCYTOPENIC PURPURA

REACTIONS (3)
  - Premature separation of placenta [None]
  - Foetal death [None]
  - Exposure during pregnancy [None]
